FAERS Safety Report 8263278-2 (Version None)
Quarter: 2012Q2

REPORT INFORMATION
  Report Type: 
  Country: None (occurrence: None)
  Receive Date: 20120405
  Receipt Date: 20120330
  Transmission Date: 20120825
  Serious: Yes (Hospitalization, Other)
  Sender: FDA-Public Use
  Company Number: US-PFIZER INC-2012057062

PATIENT
  Sex: Female
  Weight: 79.365 kg

DRUGS (4)
  1. LYRICA [Suspect]
     Indication: SPINAL OPERATION
     Dosage: 200 MG, 2X/DAY
     Route: 048
  2. LYRICA [Suspect]
     Indication: NERVE INJURY
  3. BONIVA [Concomitant]
     Indication: OSTEOPOROSIS
     Dosage: UNK
  4. BENICAR [Concomitant]
     Indication: HYPERTENSION
     Dosage: UNK

REACTIONS (9)
  - WEIGHT INCREASED [None]
  - MUSCULOSKELETAL DISCOMFORT [None]
  - RENAL DISORDER [None]
  - BURNING SENSATION [None]
  - DYSSTASIA [None]
  - CYSTITIS [None]
  - DYSPNOEA [None]
  - DYSURIA [None]
  - FLUID RETENTION [None]
